FAERS Safety Report 13678263 (Version 1)
Quarter: 2017Q2

REPORT INFORMATION
  Report Type: Spontaneous
  Country: US (occurrence: US)
  Receive Date: 20170622
  Receipt Date: 20170622
  Transmission Date: 20170830
  Serious: Yes (Other)
  Sender: FDA-Public Use
  Company Number: US-MYLANLABS-2017M1037032

PATIENT

DRUGS (1)
  1. AMIODARONE [Suspect]
     Active Substance: AMIODARONE
     Indication: CORONARY ARTERY DISEASE
     Route: 065

REACTIONS (3)
  - Pulmonary toxicity [Unknown]
  - Pulmonary fibrosis [Unknown]
  - Arterial disorder [Unknown]
